FAERS Safety Report 24569503 (Version 1)
Quarter: 2024Q4

REPORT INFORMATION
  Report Type: Spontaneous
  Country: US (occurrence: None)
  Receive Date: 20241031
  Receipt Date: 20241031
  Transmission Date: 20250115
  Serious: Yes (Other)
  Sender: Public
  Company Number: None

PATIENT
  Age: 58 Year
  Sex: Female
  Weight: 92.53 kg

DRUGS (2)
  1. ESTRADIOL [Suspect]
     Active Substance: ESTRADIOL
  2. OXYBUTYNIN. [Suspect]
     Active Substance: OXYBUTYNIN CHLORIDE

REACTIONS (7)
  - Insurance issue [None]
  - Treatment failure [None]
  - Vomiting [None]
  - Headache [None]
  - Nausea [None]
  - Dry mouth [None]
  - Swollen tongue [None]

NARRATIVE: CASE EVENT DATE: 20100920
